FAERS Safety Report 6377902-2 (Version None)
Quarter: 2009Q3

REPORT INFORMATION
  Report Type: 
  Country: None (occurrence: None)
  Receive Date: 20090925
  Receipt Date: 20090916
  Transmission Date: 20100115
  Serious: Yes (Other)
  Sender: FDA-Public Use
  Company Number: PHEH2009US11016

PATIENT
  Sex: Female

DRUGS (3)
  1. TEKTURNA HCT [Suspect]
     Dosage: 150/12.5 MG
  2. METOPROLOL TARTRATE [Suspect]
     Dosage: 50 MG, UNK
  3. LEXAPRO [Suspect]
     Dosage: 10 MG, UNK

REACTIONS (9)
  - CONVULSION [None]
  - DIZZINESS [None]
  - DYSPHAGIA [None]
  - FEELING HOT [None]
  - HEAD TITUBATION [None]
  - HYPERHIDROSIS [None]
  - HYPOAESTHESIA [None]
  - MUSCLE SPASMS [None]
  - VISION BLURRED [None]
